FAERS Safety Report 9412625 (Version 1)
Quarter: 2013Q3

REPORT INFORMATION
  Report Type: Spontaneous
  Country: US (occurrence: US)
  Receive Date: 20130722
  Receipt Date: 20130722
  Transmission Date: 20140515
  Serious: Yes (Other)
  Sender: FDA-Public Use
  Company Number: US-PFIZER INC-2013210474

PATIENT
  Age: 67 Year
  Sex: Female

DRUGS (11)
  1. SUTENT [Suspect]
     Indication: RENAL CANCER
     Dosage: 12.5 MG, UNK
     Dates: start: 20130702
  2. CYMBALTA [Concomitant]
     Dosage: UNK
  3. DIOVANE [Concomitant]
     Dosage: UNK
     Dates: start: 20130602
  4. LEVSIN [Concomitant]
     Dosage: UNK
  5. LORAZEPAM [Concomitant]
     Dosage: UNK
  6. LORCET [Concomitant]
     Dosage: UNK, HYDROCODONE BITARTRATE 10/ PARACETAMOL 650
  7. NEXIUM [Concomitant]
     Dosage: UNK
  8. NYSTATIN [Concomitant]
     Dosage: UNK
  9. SENOKOT [Concomitant]
     Dosage: UNK
  10. XANAX [Concomitant]
     Dosage: UNK
  11. ZANAFLEX [Concomitant]
     Dosage: UNK

REACTIONS (2)
  - Candida infection [Unknown]
  - Constipation [Unknown]
